FAERS Safety Report 11136100 (Version 1)
Quarter: 2015Q2

REPORT INFORMATION
  Report Type: Report from Study
  Country: FR (occurrence: FR)
  Receive Date: 20150525
  Receipt Date: 20150525
  Transmission Date: 20150821
  Serious: Yes (Other)
  Sender: FDA-Public Use
  Company Number: PHHY2015FR060882

PATIENT
  Age: 56 Year
  Sex: Male

DRUGS (8)
  1. SOLUPRED [Suspect]
     Active Substance: PREDNISOLONE
     Indication: IMMUNOSUPPRESSANT DRUG THERAPY
     Dosage: UNK
     Route: 065
     Dates: start: 20100820, end: 20110518
  2. SOLUPRED [Suspect]
     Active Substance: PREDNISOLONE
     Dosage: UNK
     Dates: start: 20131009, end: 20140213
  3. NEORAL [Suspect]
     Active Substance: CYCLOSPORINE
     Indication: IMMUNOSUPPRESSANT DRUG THERAPY
     Dosage: UNK
     Route: 065
     Dates: start: 20101030, end: 20140123
  4. SOLUPRED [Suspect]
     Active Substance: PREDNISOLONE
     Dosage: UNK
     Route: 065
     Dates: start: 20130610, end: 20130801
  5. FOSFOCINE [Concomitant]
     Active Substance: FOSFOMYCIN
     Indication: INFECTION
     Dosage: 1 G, QD
     Route: 042
     Dates: start: 20130924, end: 20130926
  6. MYFORTIC [Suspect]
     Active Substance: MYCOPHENOLATE SODIUM
     Indication: IMMUNOSUPPRESSANT DRUG THERAPY
     Dosage: UNK
     Route: 065
     Dates: start: 20100408, end: 20131009
  7. SOLUPRED [Suspect]
     Active Substance: PREDNISOLONE
     Dosage: UNK
     Route: 065
     Dates: start: 20140306, end: 201405
  8. GENTALLINE [Concomitant]
     Active Substance: GENTAMICIN SULFATE
     Indication: INFECTION
     Dosage: 180 MG, QD
     Route: 048
     Dates: start: 20130919, end: 20130924

REACTIONS (2)
  - Osteonecrosis [Recovered/Resolved]
  - Inflammation [Unknown]

NARRATIVE: CASE EVENT DATE: 20140520
